FAERS Safety Report 20363310 (Version 8)
Quarter: 2024Q2

REPORT INFORMATION
  Report Type: Spontaneous
  Country: US (occurrence: US)
  Receive Date: 20220121
  Receipt Date: 20240516
  Transmission Date: 20240716
  Serious: Yes (Death, Disabling, Other)
  Sender: FDA-Public Use
  Company Number: US-PFIZER INC-202200075673

PATIENT
  Age: 72 Year
  Sex: Male

DRUGS (3)
  1. RUXIENCE [Suspect]
     Active Substance: RITUXIMAB-PVVR
     Dosage: UNK (TWO IN DECEMBER AND TWO IN JANUARY OF 2022)
     Dates: start: 202112
  2. RUXIENCE [Suspect]
     Active Substance: RITUXIMAB-PVVR
     Dosage: UNK (TWO IN DECEMBER AND TWO IN JANUARY OF 2022)
     Dates: start: 202201
  3. DEXAMETHASONE [Suspect]
     Active Substance: DEXAMETHASONE
     Dosage: UNK

REACTIONS (14)
  - Thrombosis [Fatal]
  - Cardiac disorder [Fatal]
  - Bacterial infection [Fatal]
  - Dysstasia [Fatal]
  - Gait disturbance [Fatal]
  - Muscle atrophy [Fatal]
  - Herpes zoster [Fatal]
  - Chronic kidney disease [Fatal]
  - Platelet count decreased [Unknown]
  - Platelet count increased [Unknown]
  - Hypoaesthesia [Unknown]
  - Scar [Not Recovered/Not Resolved]
  - Neuralgia [Not Recovered/Not Resolved]
  - Dyspnoea [Unknown]

NARRATIVE: CASE EVENT DATE: 20220201
